FAERS Safety Report 8523684 (Version 2)
Quarter: 2015Q3

REPORT INFORMATION
  Report Type: Report from Study
  Country: US (occurrence: US)
  Receive Date: 20120420
  Receipt Date: 20150810
  Transmission Date: 20151125
  Serious: Yes (Disabling, Other)
  Sender: FDA-Public Use
  Company Number: US-SANOFI-AVENTIS-2012SA024738

PATIENT
  Sex: Male

DRUGS (2)
  1. LANTUS [Suspect]
     Active Substance: INSULIN GLARGINE
     Indication: TYPE 2 DIABETES MELLITUS
     Dosage: DOSE:31 UNIT(S)
     Route: 058
     Dates: start: 2002
  2. LANTUS [Suspect]
     Active Substance: INSULIN GLARGINE
     Indication: TYPE 2 DIABETES MELLITUS
     Dosage: DOSE:42 UNIT(S)
     Route: 058

REACTIONS (4)
  - Myocardial infarction [Unknown]
  - Vision blurred [Unknown]
  - Blindness unilateral [Unknown]
  - Disability [Not Recovered/Not Resolved]

NARRATIVE: CASE EVENT DATE: 2014
